FAERS Safety Report 7360449-4 (Version None)
Quarter: 2011Q1

REPORT INFORMATION
  Report Type: 
  Country: None (occurrence: None)
  Receive Date: 20110318
  Receipt Date: 20110119
  Transmission Date: 20110831
  Serious: Yes (Hospitalization, Other)
  Sender: FDA-Public Use
  Company Number: US-BAYER-201012479NA

PATIENT
  Sex: Female
  Weight: 100 kg

DRUGS (36)
  1. LEXAPRO [Concomitant]
     Indication: ANXIETY
     Dosage: 40 MG, QD
     Route: 048
  2. AMLODIPINE [Concomitant]
  3. PROMETHAZINE [Concomitant]
  4. ONDANSETRON [Concomitant]
  5. NAPROXEN [Concomitant]
     Dosage: 500 MG, PRN
     Route: 048
  6. DICLOFENAC [Concomitant]
  7. DURADRIN [Concomitant]
  8. AVELOX [Concomitant]
     Dosage: 400 MG, UNK
     Route: 048
  9. ATENOLOL [Concomitant]
     Dosage: 25 MG, UNK
     Route: 048
  10. ULTRACET [Concomitant]
     Route: 048
  11. XANAX [Concomitant]
     Dosage: 0.25 MG, PRN
     Route: 048
     Dates: start: 20080714
  12. STRATTERA [Concomitant]
     Dosage: 80 MG, QD
     Route: 048
  13. YASMIN [Suspect]
     Indication: ORAL CONTRACEPTION
  14. DICYCLOMINE [Concomitant]
  15. BUSPIRONE [Concomitant]
     Dosage: 7.5 MG, UNK
     Route: 048
  16. PROVENTIL-HFA [Concomitant]
     Route: 048
  17. UNCODEABLE ^UNCLASSIFIABLE^ [Concomitant]
     Dosage: 150 MG, QD
     Route: 048
     Dates: start: 20080714
  18. BENICAR [Concomitant]
     Dosage: 40 MG, QD
     Route: 048
  19. YAZ [Suspect]
     Indication: MIGRAINE
     Dosage: UNK
     Route: 048
     Dates: start: 20060701
  20. TRIMETHOPRIM [Concomitant]
  21. ATIVAN [Concomitant]
     Dosage: 0.5 MG, UNK
     Route: 048
  22. YASMIN [Suspect]
     Indication: MIGRAINE
     Dosage: UNK
     Route: 048
     Dates: start: 20070901, end: 20080701
  23. OXYCODONE HCL [Concomitant]
  24. FLUCONAZOLE [Concomitant]
  25. PHENERGAN [Concomitant]
     Dosage: 25 MG, PRN
     Route: 048
  26. CLONIDINE [Concomitant]
     Dosage: 5 MG, UNK
     Route: 048
  27. TRAMADOL HCL [Concomitant]
  28. YAZ [Suspect]
     Indication: ACNE
  29. YAZ [Suspect]
     Indication: ORAL CONTRACEPTION
  30. AZOR [Concomitant]
     Indication: HYPERTENSION
     Dosage: UNK, QD
     Route: 048
  31. LORATADINE [Concomitant]
     Dosage: 10 MG, UNK
     Route: 048
  32. CLINDAMYCIN [Concomitant]
  33. YASMIN [Suspect]
  34. LEXAPRO [Concomitant]
     Indication: PANIC ATTACK
  35. NITROFURANTOIN [Concomitant]
  36. UNCODEABLE ^UNCLASSIFIABLE^ [Concomitant]
     Route: 048

REACTIONS (5)
  - DYSPEPSIA [None]
  - NAUSEA [None]
  - CHOLELITHIASIS [None]
  - CHOLECYSTITIS CHRONIC [None]
  - BACK PAIN [None]
